FAERS Safety Report 6788552-8 (Version None)
Quarter: 2010Q2

REPORT INFORMATION
  Report Type: 
  Country: None (occurrence: None)
  Receive Date: 20100623
  Receipt Date: 20080331
  Transmission Date: 20101027
  Serious: No
  Sender: FDA-Public Use
  Company Number: US-PFIZER INC-2008028856

PATIENT
  Sex: Female

DRUGS (2)
  1. DEPO-PROVERA SUSPENSION/INJ [Suspect]
  2. LEXAPRO [Interacting]
     Dates: start: 20080301

REACTIONS (2)
  - DRUG INTERACTION [None]
  - METRORRHAGIA [None]
